FAERS Safety Report 5227770-7 (Version None)
Quarter: 2007Q1

REPORT INFORMATION
  Report Type: 
  Country: None (occurrence: None)
  Receive Date: 20070202
  Receipt Date: 20070126
  Transmission Date: 20070707
  Serious: Yes (Other)
  Sender: FDA-Public Use
  Company Number: FR-PFIZER INC-2007007403

PATIENT
  Age: 56 Year
  Sex: Male

DRUGS (6)
  1. LYRICA [Suspect]
     Indication: NEURALGIA
  2. TAHOR [Concomitant]
  3. COAPROVEL [Concomitant]
  4. STRUCTUM [Concomitant]
  5. EUPANTOL [Concomitant]
  6. ZAMADOL [Concomitant]

REACTIONS (3)
  - LOSS OF CONSCIOUSNESS [None]
  - MALAISE [None]
  - ROAD TRAFFIC ACCIDENT [None]
